FAERS Safety Report 12005233 (Version 2)
Quarter: 2016Q1

REPORT INFORMATION
  Report Type: Spontaneous
  Country: BR (occurrence: BR)
  Receive Date: 20160204
  Receipt Date: 20160301
  Transmission Date: 20160526
  Serious: Yes (Hospitalization, Other)
  Sender: FDA-Public Use
  Company Number: BR-AMGEN-BRASP2016012738

PATIENT
  Age: 52 Year
  Sex: Female
  Weight: 72 kg

DRUGS (2)
  1. ENBREL [Suspect]
     Active Substance: ETANERCEPT
     Indication: RHEUMATOID ARTHRITIS
     Dosage: 1 ML OF INJECTABLE SOLUTION (EACH SYRINGE), ONCE PER WEEK
     Route: 058
     Dates: start: 2012
  2. METHOTREXATE [Concomitant]
     Active Substance: METHOTREXATE
     Dosage: 25 MG, UNK
     Dates: start: 2006

REACTIONS (4)
  - Tibia fracture [Unknown]
  - Ankle fracture [Unknown]
  - Fibula fracture [Unknown]
  - Fall [Unknown]

NARRATIVE: CASE EVENT DATE: 20160109
